FAERS Safety Report 7268252-0 (Version None)
Quarter: 2010Q4

REPORT INFORMATION
  Report Type: 
  Country: None (occurrence: None)
  Receive Date: 20101206
  Receipt Date: 20100908
  Transmission Date: 20110411
  Serious: No
  Sender: FDA-Public Use
  Company Number: 2010SP048276

PATIENT
  Age: 22 Year
  Sex: Female

DRUGS (4)
  1. SAPHRIS [Suspect]
     Indication: SCHIZOAFFECTIVE DISORDER
     Dosage: 5 MG; BID; SL
     Route: 060
     Dates: start: 20100819
  2. NEURONTIN [Concomitant]
  3. KLONOPIN [Concomitant]
  4. ABILIFY [Concomitant]

REACTIONS (5)
  - DEPRESSION [None]
  - DYSPEPSIA [None]
  - FEELING ABNORMAL [None]
  - HYPOAESTHESIA ORAL [None]
  - URINE ODOUR ABNORMAL [None]
